FAERS Safety Report 20204225 (Version 2)
Quarter: 2022Q1

REPORT INFORMATION
  Report Type: Spontaneous
  Country: DE (occurrence: DE)
  Receive Date: 20211220
  Receipt Date: 20220104
  Transmission Date: 20220424
  Serious: No
  Sender: FDA-Public Use
  Company Number: DE-UCBSA-2021058596

PATIENT
  Sex: Female

DRUGS (1)
  1. NEUPRO [Suspect]
     Active Substance: ROTIGOTINE
     Indication: Product used for unknown indication
     Dosage: UNK
     Route: 062
     Dates: start: 2021

REACTIONS (2)
  - Application site erythema [Unknown]
  - Device adhesion issue [Unknown]
